FAERS Safety Report 14925943 (Version 1)
Quarter: 2018Q2

REPORT INFORMATION
  Report Type: Spontaneous
  Country: US (occurrence: US)
  Receive Date: 20180522
  Receipt Date: 20180522
  Transmission Date: 20180711
  Serious: Yes (Hospitalization, Other)
  Sender: FDA-Public Use
  Company Number: US-ASTRAZENECA-2018SE65652

PATIENT
  Age: 42 Year
  Sex: Female

DRUGS (2)
  1. EMBRIL [Concomitant]
     Indication: ARTHRITIS
  2. BRILINTA [Suspect]
     Active Substance: TICAGRELOR
     Indication: MYOCARDIAL INFARCTION
     Route: 048

REACTIONS (4)
  - Vascular stent thrombosis [Unknown]
  - Complication associated with device [Unknown]
  - Coronary artery disease [Unknown]
  - Arthritis [Unknown]
